FAERS Safety Report 20952816 (Version 1)
Quarter: 2022Q2

REPORT INFORMATION
  Report Type: Spontaneous
  Country: US (occurrence: None)
  Receive Date: 20220613
  Receipt Date: 20220613
  Transmission Date: 20220721
  Serious: Yes (Other)
  Sender: FDA-Public Use
  Company Number: None

PATIENT
  Sex: Female

DRUGS (1)
  1. PERMETHRIN [Suspect]
     Active Substance: PERMETHRIN
     Indication: Acarodermatitis
     Dosage: OTHER QUANTITY : 1 1 TUBE;?FREQUENCY : EVERY 12 HOURS;?
     Route: 061
     Dates: start: 20220411, end: 20220419

REACTIONS (2)
  - Application site pain [None]
  - Chemical burn of skin [None]

NARRATIVE: CASE EVENT DATE: 20220419
